FAERS Safety Report 4315190-9 (Version None)
Quarter: 2004Q1

REPORT INFORMATION
  Report Type: 
  Country: None (occurrence: None)
  Receive Date: 20040310
  Receipt Date: 20040302
  Transmission Date: 20041129
  Serious: Yes (Hospitalization)
  Sender: FDA-Public Use
  Company Number: WAES 0403FRA00009

PATIENT
  Age: 67 Year
  Sex: Male

DRUGS (3)
  1. KETOPROFEN [Suspect]
     Indication: BACK PAIN
     Route: 048
     Dates: start: 20031001, end: 20031001
  2. PREDNISOLONE [Concomitant]
     Indication: BACK PAIN
     Route: 051
     Dates: start: 20031014, end: 20031014
  3. VIOXX [Suspect]
     Indication: BACK PAIN
     Route: 048
     Dates: start: 20031001, end: 20031001

REACTIONS (4)
  - CUTANEOUS VASCULITIS [None]
  - OEDEMA PERIPHERAL [None]
  - PROTEINURIA [None]
  - PURPURA [None]
